FAERS Safety Report 21354748 (Version 1)
Quarter: 2022Q3

REPORT INFORMATION
  Report Type: Spontaneous
  Country: GB (occurrence: GB)
  Receive Date: 20220920
  Receipt Date: 20220920
  Transmission Date: 20221027
  Serious: Yes (Other)
  Sender: FDA-Public Use
  Company Number: GB-AMGEN-GBRSP2022159009

PATIENT
  Age: 71 Year
  Sex: Female
  Weight: 88 kg

DRUGS (15)
  1. ADALIMUMAB [Suspect]
     Active Substance: ADALIMUMAB
     Indication: Psoriasis
     Dosage: 40 MILLIGRAM, Q2WK
     Route: 065
     Dates: start: 20190628
  2. RAMIPRIL [Concomitant]
     Active Substance: RAMIPRIL
     Dosage: UNK
     Dates: start: 20050715
  3. WARFARIN [Concomitant]
     Active Substance: WARFARIN
     Dosage: UNK
     Dates: start: 20160516
  4. Cetraben [Concomitant]
     Dosage: UNK
     Dates: start: 20191018
  5. EUMOVATE [Concomitant]
     Active Substance: CLOBETASONE BUTYRATE
     Dosage: UNK
     Dates: start: 20200608
  6. MINERAL OIL\PARAFFIN [Concomitant]
     Active Substance: MINERAL OIL\PARAFFIN
     Dosage: UNK
     Dates: start: 20200608
  7. COVID-19 vaccine [Concomitant]
     Dosage: UNK
     Dates: start: 20210202, end: 20210202
  8. COVID-19 vaccine [Concomitant]
     Dosage: UNK
     Dates: start: 20210420, end: 20210420
  9. COVID-19 vaccine [Concomitant]
     Dosage: UNK
     Dates: start: 20210927, end: 20210927
  10. COVID-19 vaccine [Concomitant]
     Dosage: UNK
     Dates: start: 20220131, end: 20220131
  11. COVID-19 vaccine [Concomitant]
     Dosage: UNK
     Dates: start: 20220609
  12. LETROZOLE [Concomitant]
     Active Substance: LETROZOLE
     Dosage: UNK
     Dates: start: 20220425
  13. ENTRESTO [Concomitant]
     Active Substance: SACUBITRIL\VALSARTAN
     Dosage: UNK
     Dates: start: 20220509
  14. DAPAGLIFLOZIN [Concomitant]
     Active Substance: DAPAGLIFLOZIN
     Dosage: UNK
     Dates: start: 20220509
  15. BISOPROLOL [Concomitant]
     Active Substance: BISOPROLOL
     Dosage: UNK
     Dates: start: 20220509

REACTIONS (1)
  - Neoplasm malignant [Not Recovered/Not Resolved]

NARRATIVE: CASE EVENT DATE: 20220210
